FAERS Safety Report 14650833 (Version 2)
Quarter: 2019Q3

REPORT INFORMATION
  Report Type: Report from Study
  Country: BE (occurrence: BE)
  Receive Date: 20180316
  Receipt Date: 20190710
  Transmission Date: 20191004
  Serious: Yes (Death, Hospitalization)
  Sender: FDA-Public Use
  Company Number: PHHY2018BE034016

PATIENT
  Age: 89 Year
  Sex: Male
  Weight: 60.5 kg

DRUGS (1)
  1. ENTRESTO [Suspect]
     Active Substance: SACUBITRIL\VALSARTAN
     Indication: CARDIAC FAILURE CHRONIC
     Dosage: 1 DF (SACUBITRIL 24, VALSARTAN 26), QD
     Route: 048
     Dates: start: 20170828, end: 20171210

REACTIONS (3)
  - Ventricular tachycardia [Recovered/Resolved]
  - Cardiac failure [Recovered/Resolved]
  - Death [Fatal]

NARRATIVE: CASE EVENT DATE: 20171127
